FAERS Safety Report 15158032 (Version 1)
Quarter: 2018Q3

REPORT INFORMATION
  Report Type: Spontaneous
  Country: JP (occurrence: JP)
  Receive Date: 20180718
  Receipt Date: 20180718
  Transmission Date: 20181010
  Serious: Yes (Life-Threatening, Hospitalization)
  Sender: FDA-Public Use
  Company Number: JP-TEVA-2018-JP-926250

PATIENT
  Age: 63 Year
  Sex: Male

DRUGS (6)
  1. ETIZOLAM [Suspect]
     Active Substance: ETIZOLAM
     Route: 065
  2. LAMOTRIGINE. [Suspect]
     Active Substance: LAMOTRIGINE
     Route: 065
  3. ZOLPIDEM [Suspect]
     Active Substance: ZOLPIDEM\ZOLPIDEM TARTRATE
     Route: 065
  4. ARIPIPRAZOLE. [Suspect]
     Active Substance: ARIPIPRAZOLE
     Route: 065
  5. LITHIUM CARBONATE. [Suspect]
     Active Substance: LITHIUM CARBONATE
     Route: 065
  6. DONEPEZIL HYDROCHLORIDE. [Suspect]
     Active Substance: DONEPEZIL HYDROCHLORIDE
     Route: 065

REACTIONS (25)
  - Renal impairment [Unknown]
  - Leukocytosis [Unknown]
  - Urine output decreased [Unknown]
  - Depressive symptom [Unknown]
  - Respiratory depression [Unknown]
  - Tachypnoea [Unknown]
  - Leukoencephalopathy [Recovering/Resolving]
  - Intentional overdose [Recovering/Resolving]
  - Hepatic function abnormal [Unknown]
  - Anaemia [Unknown]
  - Chronic kidney disease [Unknown]
  - Tachycardia [Unknown]
  - Urinary incontinence [Unknown]
  - Locked-in syndrome [Recovering/Resolving]
  - Suicide attempt [Recovering/Resolving]
  - Hypotension [Unknown]
  - Respiratory acidosis [Unknown]
  - Hypoxia [Unknown]
  - Blood urea increased [Unknown]
  - Hypokalaemia [Unknown]
  - Frontotemporal dementia [Not Recovered/Not Resolved]
  - Drug ineffective [Unknown]
  - Coma [Recovered/Resolved]
  - Blood creatine phosphokinase increased [Unknown]
  - Suicidal ideation [Unknown]
